FAERS Safety Report 6316774-9 (Version None)
Quarter: 2009Q3

REPORT INFORMATION
  Report Type: 
  Country: None (occurrence: None)
  Receive Date: 20090820
  Receipt Date: 20090812
  Transmission Date: 20100115
  Serious: Yes (Hospitalization)
  Sender: FDA-Public Use
  Company Number: PHHY2009FR25280

PATIENT
  Sex: Female

DRUGS (8)
  1. ACLASTA [Suspect]
     Dosage: UNK
     Dates: start: 20090523
  2. NISIS [Suspect]
     Indication: HYPERTENSION
     Dosage: 160 MG DAILY
     Dates: start: 20090503
  3. LASIX [Suspect]
     Indication: OEDEMA PERIPHERAL
     Dosage: 20 MG DAILY
     Dates: start: 20090518
  4. SERESTA [Suspect]
     Dosage: 0.5 DF DAILY
     Dates: start: 20090523
  5. DAFALGAN [Concomitant]
     Dosage: 4 G DAILY
  6. PRAVASTATIN [Concomitant]
     Dosage: 20 MG, UNK
  7. FRAGMIN [Concomitant]
     Dosage: 5000 IU, UNK
  8. KARDEGIC [Concomitant]
     Dosage: 160 MG, UNK

REACTIONS (5)
  - BRAIN NATRIURETIC PEPTIDE INCREASED [None]
  - DYSPNOEA [None]
  - NEPHROPATHY TOXIC [None]
  - OEDEMA [None]
  - RENAL FAILURE [None]
